FAERS Safety Report 8902073 (Version 3)
Quarter: 2012Q4

REPORT INFORMATION
  Report Type: 
  Country: IT (occurrence: IT)
  Receive Date: 20121112
  Receipt Date: 20121207
  Transmission Date: 20130627
  Serious: Yes (Hospitalization, Other)
  Sender: FDA-Public Use
  Company Number: PHHY2012IT096209

PATIENT
  Age: 34 Year
  Sex: Male

DRUGS (4)
  1. GILENYA [Suspect]
     Indication: RELAPSING-REMITTING MULTIPLE SCLEROSIS
     Dosage: 0.5 mg, QD
     Route: 048
     Dates: start: 20121023, end: 20121023
  2. SERTRALINE [Concomitant]
     Indication: EMOTIONAL DISTRESS
     Dosage: 50 mg, UNK
     Route: 048
     Dates: start: 20070615
  3. LANSOPRAZOLE [Concomitant]
     Indication: GASTROOESOPHAGEAL REFLUX DISEASE
     Dosage: 30 mg, UNK
     Route: 048
     Dates: start: 20110901
  4. MITOXANTRONE [Concomitant]
     Dosage: UNK UKN, UNK

REACTIONS (13)
  - Grand mal convulsion [Recovered/Resolved]
  - Amnesia [Unknown]
  - Confusional state [Unknown]
  - Loss of consciousness [Unknown]
  - Muscle rigidity [Unknown]
  - Central nervous system lesion [Unknown]
  - Left atrial dilatation [Unknown]
  - Oxygen saturation decreased [Unknown]
  - Red cell distribution width increased [Unknown]
  - Electroencephalogram abnormal [Unknown]
  - Heart rate increased [Unknown]
  - Heart rate decreased [Unknown]
  - Blood pressure increased [Unknown]
